FAERS Safety Report 5451257-X (Version None)
Quarter: 2007Q3

REPORT INFORMATION
  Report Type: 
  Country: None (occurrence: None)
  Receive Date: 20070911
  Receipt Date: 20070911
  Transmission Date: 20080115
  Serious: No
  Sender: FDA-Public Use
  Company Number: None

PATIENT
  Age: 80 Year
  Sex: Male

DRUGS (1)
  1. CEPHALEXIN [Suspect]
     Indication: SKIN LESION
     Dosage: 500 MG TID PO
     Route: 048
     Dates: start: 20070816, end: 20070823

REACTIONS (1)
  - RASH [None]
